FAERS Safety Report 13352927 (Version 1)
Quarter: 2017Q1

REPORT INFORMATION
  Report Type: Report from Study
  Country: None (occurrence: US)
  Receive Date: 20170320
  Receipt Date: 20170320
  Transmission Date: 20170429
  Serious: Yes (Other)
  Sender: FDA-Public Use
  Company Number: US-ABBVIE-17K-163-1890625-00

PATIENT
  Age: 61 Year
  Sex: Female

DRUGS (1)
  1. HUMIRA [Suspect]
     Active Substance: ADALIMUMAB
     Indication: ANKYLOSING SPONDYLITIS
     Route: 058
     Dates: end: 201701

REACTIONS (5)
  - Urinary tract infection [Unknown]
  - Influenza [Recovered/Resolved]
  - Anxiety [Not Recovered/Not Resolved]
  - Urethral obstruction [Recovered/Resolved]
  - Urethral obstruction [Recovered/Resolved]

NARRATIVE: CASE EVENT DATE: 201612
